FAERS Safety Report 12917204 (Version 1)
Quarter: 2016Q4

REPORT INFORMATION
  Report Type: Spontaneous
  Country: US (occurrence: US)
  Receive Date: 20161107
  Receipt Date: 20161107
  Transmission Date: 20170207
  Serious: No
  Sender: FDA-Public Use
  Company Number: US-JAZZ-2016-US-017371

PATIENT
  Sex: Female

DRUGS (13)
  1. XYREM [Suspect]
     Active Substance: SODIUM OXYBATE
     Dosage: 4.5 G, BID
     Route: 048
     Dates: start: 201006
  2. NASACORT [Concomitant]
     Active Substance: TRIAMCINOLONE ACETONIDE
  3. TOPAMAX [Concomitant]
     Active Substance: TOPIRAMATE
  4. ADVAIR HFA [Concomitant]
     Active Substance: FLUTICASONE PROPIONATE\SALMETEROL XINAFOATE
  5. PROVENTIL [Concomitant]
     Active Substance: ALBUTEROL
  6. IMITREX [Concomitant]
     Active Substance: SUMATRIPTAN SUCCINATE
  7. LUNESTA [Concomitant]
     Active Substance: ESZOPICLONE
  8. XYREM [Suspect]
     Active Substance: SODIUM OXYBATE
     Indication: PRODUCT USED FOR UNKNOWN INDICATION
     Dosage: 4.5 G, BID
     Route: 048
     Dates: start: 200808, end: 2009
  9. ACCOLATE [Concomitant]
     Active Substance: ZAFIRLUKAST
  10. FENTORA [Concomitant]
     Active Substance: FENTANYL CITRATE
  11. DEPAKOTE [Concomitant]
     Active Substance: DIVALPROEX SODIUM
  12. MAXALT [Concomitant]
     Active Substance: RIZATRIPTAN BENZOATE
  13. TRICOR [Concomitant]
     Active Substance: FENOFIBRATE

REACTIONS (2)
  - Mycotic allergy [Not Recovered/Not Resolved]
  - Dyspnoea [Not Recovered/Not Resolved]
